FAERS Safety Report 11440505 (Version 2)
Quarter: 2015Q3

REPORT INFORMATION
  Report Type: Spontaneous
  Country: US (occurrence: US)
  Receive Date: 20150901
  Receipt Date: 20150904
  Transmission Date: 20151125
  Serious: Yes (Hospitalization)
  Sender: FDA-Public Use
  Company Number: US-ROCHE-1625332

PATIENT
  Sex: Female
  Weight: 109 kg

DRUGS (11)
  1. LYRICA [Suspect]
     Active Substance: PREGABALIN
     Route: 048
     Dates: start: 1990
  2. HUMALOG [Concomitant]
     Active Substance: INSULIN LISPRO
  3. ATORVASTATIN [Concomitant]
     Active Substance: ATORVASTATIN
     Route: 065
  4. LYRICA [Suspect]
     Active Substance: PREGABALIN
     Route: 048
  5. INSULIN [Concomitant]
     Active Substance: INSULIN NOS
     Route: 065
     Dates: start: 20150113
  6. LEVEMIR [Concomitant]
     Active Substance: INSULIN DETEMIR
  7. LYRICA [Suspect]
     Active Substance: PREGABALIN
     Indication: NEUROPATHY PERIPHERAL
     Dosage: DAILY AT BREAKFAST
     Route: 048
  8. AVASTIN [Suspect]
     Active Substance: BEVACIZUMAB
     Indication: RETINAL SCAR
     Route: 065
  9. LEVOTHYROXINE. [Concomitant]
     Active Substance: LEVOTHYROXINE
     Indication: THYROID DISORDER
     Route: 065
  10. LUCENTIS [Suspect]
     Active Substance: RANIBIZUMAB
     Indication: RETINAL SCAR
     Route: 065
  11. LYRICA [Suspect]
     Active Substance: PREGABALIN
     Route: 048

REACTIONS (7)
  - Blood glucose increased [Unknown]
  - Weight decreased [Unknown]
  - Drug ineffective [Unknown]
  - Cataract [Unknown]
  - Off label use [Unknown]
  - Visual acuity reduced [Unknown]
  - Musculoskeletal stiffness [Unknown]
